FAERS Safety Report 5745978-9 (Version None)
Quarter: 2008Q2

REPORT INFORMATION
  Report Type: 
  Country: None (occurrence: None)
  Receive Date: 20080520
  Receipt Date: 20080512
  Transmission Date: 20081010
  Serious: Yes (Death, Hospitalization)
  Sender: FDA-Public Use
  Company Number: 2008AL004623

PATIENT
  Age: 75 Year
  Sex: Male
  Weight: 93.5 kg

DRUGS (9)
  1. ETODOLAC [Suspect]
     Dosage: PO
     Route: 048
     Dates: start: 20050601, end: 20060513
  2. AG-013736 STUDY DRUG [Concomitant]
  3. ALLOPURINOL [Concomitant]
  4. PLAVIX [Concomitant]
  5. FELODIPINE [Concomitant]
  6. VITAMIN CAP [Concomitant]
  7. RANITIDINE [Concomitant]
  8. LOSARTAN POTASSIUM [Concomitant]
  9. LOPERAMIDE HCL [Concomitant]

REACTIONS (5)
  - FATIGUE [None]
  - LARGE INTESTINAL ULCER [None]
  - LARGE INTESTINAL ULCER HAEMORRHAGE [None]
  - LUNG NEOPLASM MALIGNANT [None]
  - RECTAL HAEMORRHAGE [None]
